FAERS Safety Report 14905333 (Version 1)
Quarter: 2018Q2

REPORT INFORMATION
  Report Type: Spontaneous
  Country: US (occurrence: US)
  Receive Date: 20180517
  Receipt Date: 20180517
  Transmission Date: 20180711
  Serious: No
  Sender: FDA-Public Use
  Company Number: US-SA-2017SA251429

PATIENT
  Age: 80 Year
  Sex: Male
  Weight: 86.18 kg

DRUGS (2)
  1. LANTUS [Suspect]
     Active Substance: INSULIN GLARGINE
     Route: 051
  2. HUMALOG [Concomitant]
     Active Substance: INSULIN LISPRO
     Indication: DIABETES MELLITUS
     Dosage: PLUS MINUS 45 U DAILY OF 15 UNITS EACH DOSE?START DATE: 65 YEARS AGO
     Route: 065

REACTIONS (2)
  - Visual impairment [Not Recovered/Not Resolved]
  - Hypoglycaemia [Unknown]
